FAERS Safety Report 4954153-7 (Version None)
Quarter: 2006Q1

REPORT INFORMATION
  Report Type: 
  Country: None (occurrence: None)
  Receive Date: 20060327
  Receipt Date: 20060321
  Transmission Date: 20060701
  Serious: Yes (Hospitalization)
  Sender: FDA-Public Use
  Company Number: DK-AVENTIS-200612754GDDC

PATIENT
  Age: 39 Year
  Sex: Male

DRUGS (1)
  1. MINIRIN [Suspect]
     Indication: DIABETES INSIPIDUS
     Dosage: DOSE: UNK

REACTIONS (4)
  - HYPONATRAEMIA [None]
  - PERSECUTORY DELUSION [None]
  - RHINITIS [None]
  - WATER INTOXICATION [None]
